FAERS Safety Report 9421257 (Version 1)
Quarter: 2013Q3

REPORT INFORMATION
  Report Type: Spontaneous
  Country: BR (occurrence: BR)
  Receive Date: 20130725
  Receipt Date: 20130725
  Transmission Date: 20140515
  Serious: Yes (Other)
  Sender: FDA-Public Use
  Company Number: PHHY2013BR079337

PATIENT
  Age: 21 Year
  Sex: Female

DRUGS (2)
  1. RITALINA [Suspect]
     Indication: ATTENTION DEFICIT/HYPERACTIVITY DISORDER
     Dosage: 2 DF, BID (2 TABLETS IN THE MORNING + 2 TABLETS IN THE AFTERNOON)
     Route: 048
  2. ABLOK [Concomitant]
     Indication: HEART RATE INCREASED
     Dosage: 2 DF, QD
     Route: 048

REACTIONS (3)
  - Syncope [Recovered/Resolved]
  - Convulsion [Recovered/Resolved]
  - Drug administered to patient of inappropriate age [Unknown]
